FAERS Safety Report 4878545-X (Version None)
Quarter: 2006Q1

REPORT INFORMATION
  Report Type: 
  Country: None (occurrence: None)
  Receive Date: 20060110
  Receipt Date: 20060110
  Transmission Date: 20060701
  Serious: Yes (Disabling, Other)
  Sender: FDA-Public Use
  Company Number: None

PATIENT
  Age: 35 Year
  Sex: Female
  Weight: 49.8957 kg

DRUGS (2)
  1. ZOLOFT [Suspect]
     Indication: ANXIETY
     Dosage: 25 MG    EVERY NIGHT   ORAL
     Route: 048
     Dates: start: 20051115, end: 20051122
  2. KLONOPIN [Concomitant]

REACTIONS (8)
  - ADNEXA UTERI PAIN [None]
  - AGITATION [None]
  - BLOOD FOLLICLE STIMULATING HORMONE INCREASED [None]
  - BLOOD LUTEINISING HORMONE INCREASED [None]
  - MENOPAUSE [None]
  - MENSTRUATION IRREGULAR [None]
  - TINNITUS [None]
  - VISION BLURRED [None]
